FAERS Safety Report 17410000 (Version 1)
Quarter: 2020Q1

REPORT INFORMATION
  Report Type: Spontaneous
  Country: DE (occurrence: DE)
  Receive Date: 20200212
  Receipt Date: 20200212
  Transmission Date: 20200409
  Serious: Yes (Other)
  Sender: FDA-Public Use
  Company Number: DE-PFIZER INC-2020059701

PATIENT
  Age: 81 Year
  Sex: Female

DRUGS (1)
  1. PIPERACILLIN/TAZOBACTAM [Suspect]
     Active Substance: PIPERACILLIN SODIUM\TAZOBACTAM SODIUM
     Indication: INTERVERTEBRAL DISCITIS
     Dosage: 13.5 G, DAILY
     Route: 042
     Dates: start: 20191202, end: 20191206

REACTIONS (1)
  - Diabetes insipidus [Recovered/Resolved]

NARRATIVE: CASE EVENT DATE: 201912
